FAERS Safety Report 9849378 (Version 2)
Quarter: 2014Q1

REPORT INFORMATION
  Report Type: Report from Study
  Country: TH (occurrence: TH)
  Receive Date: 20140128
  Receipt Date: 20140128
  Transmission Date: 20141002
  Serious: Yes (Life-Threatening, Hospitalization)
  Sender: FDA-Public Use
  Company Number: TH-ROCHE-1080464

PATIENT
  Age: 56 Year
  Sex: Female
  Weight: 65.7 kg

DRUGS (28)
  1. OBINUTUZUMAB [Suspect]
     Indication: DIFFUSE LARGE B-CELL LYMPHOMA
     Dosage: VOLUME AND CONCENTRATION OF LAST DOSE TAKEN 250 ML AND 4 MG/ML RESPECTIVELY, DATE OF LAST DOSE PRIOR
     Route: 042
     Dates: start: 20120127
  2. CYCLOPHOSPHAMIDE [Suspect]
     Indication: DIFFUSE LARGE B-CELL LYMPHOMA
     Dosage: DOSE LAST TAKEN 1280 MG, DATE OF LAST DOSE PRIOR TO EVENT: 08/JUN/2012
     Route: 042
     Dates: start: 20120127
  3. DOXORUBICIN [Suspect]
     Indication: DIFFUSE LARGE B-CELL LYMPHOMA
     Dosage: LAST DOSE TAKEN 85 MG, DATE OF LAST DOSE PRIOR TO EVENT: 08/JUN/2012
     Route: 042
     Dates: start: 20120127
  4. VINCRISTINE [Suspect]
     Indication: DIFFUSE LARGE B-CELL LYMPHOMA
     Dosage: LAST DOSE TAKEN 2.0 MG, DATE OF LAST DOSE PRIOR TO EVENT: 08/JUN/2012, INTRAVENOUS PUSH
     Route: 042
     Dates: start: 20120127
  5. PREDNISOLONE [Suspect]
     Indication: DIFFUSE LARGE B-CELL LYMPHOMA
     Dosage: LAST DOSE TAKEN 100 MG, DATE OF LAST DOSE PRIOR TO EVENT: 08/JUN/2012
     Route: 048
     Dates: start: 20120127
  6. WARFARIN [Concomitant]
     Indication: DEEP VEIN THROMBOSIS
     Route: 065
     Dates: start: 20120217, end: 20120823
  7. TAZOCIN [Concomitant]
     Indication: FEBRILE NEUTROPENIA
     Route: 065
     Dates: start: 20120527, end: 20120603
  8. HYDROCORTISONE [Concomitant]
     Indication: FEBRILE NEUTROPENIA
     Route: 065
     Dates: start: 20120527, end: 20120527
  9. MAGNESIUM CHLORIDE [Concomitant]
     Indication: FEBRILE NEUTROPENIA
     Route: 065
     Dates: start: 20120527, end: 20120528
  10. FILGRASTIM [Concomitant]
     Indication: FEBRILE NEUTROPENIA
     Route: 065
     Dates: start: 20120527, end: 20120531
  11. ACYCLOVIR [Concomitant]
     Indication: FEBRILE NEUTROPENIA
     Route: 065
     Dates: start: 20120527
  12. BACTRIM [Concomitant]
     Indication: FEBRILE NEUTROPENIA
     Route: 065
     Dates: start: 20120528
  13. FOLIC ACID [Concomitant]
     Indication: FEBRILE NEUTROPENIA
     Route: 065
     Dates: start: 20120527, end: 20120607
  14. DEXTROMETHORPHAN [Concomitant]
     Indication: FEBRILE NEUTROPENIA
     Route: 065
     Dates: start: 20120530, end: 20120603
  15. NASOLIN (THAILAND) [Concomitant]
     Indication: FEBRILE NEUTROPENIA
     Route: 065
     Dates: start: 20120531, end: 20120603
  16. TAMIFLU [Concomitant]
     Indication: FEBRILE NEUTROPENIA
     Route: 065
     Dates: start: 20120531, end: 20120604
  17. ENOXAPARIN [Concomitant]
     Indication: DEEP VEIN THROMBOSIS
     Route: 065
     Dates: start: 20120601, end: 20120607
  18. POTASSIUM CHLORIDE [Concomitant]
     Indication: FEBRILE NEUTROPENIA
     Route: 065
     Dates: start: 20120527, end: 20120602
  19. POTASSIUM CHLORIDE [Concomitant]
     Route: 065
     Dates: start: 20120602, end: 20120608
  20. GLIPIZIDE [Concomitant]
     Indication: DIABETES MELLITUS
     Route: 065
     Dates: start: 20120427
  21. CETIRIZIN [Concomitant]
     Indication: FEBRILE NEUTROPENIA
     Route: 065
     Dates: start: 20120603
  22. ORFARIN [Concomitant]
     Indication: THROMBOSIS PROPHYLAXIS
     Route: 065
     Dates: start: 20120617, end: 20120625
  23. BENADRYL (THAILAND) [Concomitant]
     Indication: PREMEDICATION
     Route: 065
     Dates: start: 20120127, end: 20120629
  24. DEXAMETHASONE [Concomitant]
     Indication: PREMEDICATION
     Route: 065
     Dates: start: 20120127, end: 20120629
  25. PARACETAMOL [Concomitant]
     Indication: PREMEDICATION
     Route: 065
     Dates: start: 20120127, end: 20120629
  26. ONDANSETRON [Concomitant]
     Indication: PREMEDICATION
     Route: 065
     Dates: start: 20120127, end: 20120629
  27. ONDANSETRON [Concomitant]
     Indication: NAUSEA
  28. ONDANSETRON [Concomitant]
     Indication: VOMITING

REACTIONS (1)
  - Pancytopenia [Recovered/Resolved]
